FAERS Safety Report 5407341-X (Version None)
Quarter: 2007Q3

REPORT INFORMATION
  Report Type: 
  Country: None (occurrence: None)
  Receive Date: 20070807
  Receipt Date: 20070727
  Transmission Date: 20080115
  Serious: Yes (Other)
  Sender: FDA-Public Use
  Company Number: GR-ROCHE-509586

PATIENT
  Age: 69 Year
  Sex: Male

DRUGS (3)
  1. XELODA [Suspect]
     Route: 048
     Dates: start: 20070423
  2. AVASTIN [Concomitant]
     Dates: start: 20070423
  3. ANTIHYPERTENSIVE NOS [Concomitant]
     Dosage: DRUG NAME: ANTIHYPERTENSIVE DRUGS NOS

REACTIONS (1)
  - HAEMOLYSIS [None]
